FAERS Safety Report 20368983 (Version 1)
Quarter: 2022Q1

REPORT INFORMATION
  Report Type: Spontaneous
  Country: US (occurrence: None)
  Receive Date: 20220121
  Receipt Date: 20220121
  Transmission Date: 20220423
  Serious: Yes (Hospitalization)
  Sender: FDA-Public Use
  Company Number: None

PATIENT
  Age: 70 Year
  Sex: Male

DRUGS (1)
  1. CAPECITABINE [Suspect]
     Active Substance: CAPECITABINE
     Indication: Rectal cancer
     Dosage: OTHER QUANTITY : 500MGTAB,3;?FREQUENCY : TWICE A DAY;?
     Route: 048
     Dates: start: 202101

REACTIONS (3)
  - Chest pain [None]
  - Troponin increased [None]
  - Myocardial infarction [None]

NARRATIVE: CASE EVENT DATE: 20220119
